FAERS Safety Report 7491603-9 (Version None)
Quarter: 2011Q2

REPORT INFORMATION
  Report Type: 
  Country: None (occurrence: None)
  Receive Date: 20110519
  Receipt Date: 20110511
  Transmission Date: 20111010
  Serious: Yes (Death, Other)
  Sender: FDA-Public Use
  Company Number: EC-GENENTECH-318861

PATIENT
  Sex: Female
  Weight: 53.1 kg

DRUGS (6)
  1. DEXTROPROPOXYPHENE [Concomitant]
     Indication: PAIN
     Dosage: UNK UNK, BID
     Route: 048
     Dates: start: 20091001, end: 20110401
  2. CYCLOPHOSPHAMIDE [Concomitant]
     Indication: NON-HODGKIN'S LYMPHOMA
     Dosage: 750 MG/M2, Q3W
     Route: 042
     Dates: start: 20091111, end: 20110401
  3. RITUXAN [Suspect]
     Indication: NON-HODGKIN'S LYMPHOMA
     Dosage: 375 MG/M2, Q3W
     Route: 042
     Dates: start: 20091111, end: 20110401
  4. DOXORUBICIN HCL [Concomitant]
     Indication: NON-HODGKIN'S LYMPHOMA
     Dosage: 50 MG/M2, Q3W
     Route: 042
     Dates: start: 20091111, end: 20110401
  5. VINCRISTINE [Concomitant]
     Indication: NON-HODGKIN'S LYMPHOMA
     Dosage: 1.4 MG/M2, Q3W
     Route: 042
     Dates: start: 20091111, end: 20110401
  6. PREDNISOLONE [Concomitant]
     Indication: NON-HODGKIN'S LYMPHOMA
     Dosage: 40 MG/M2, Q3W
     Route: 042
     Dates: start: 20091111, end: 20110401

REACTIONS (4)
  - JAUNDICE [None]
  - HEPATIC FAILURE [None]
  - HIP FRACTURE [None]
  - ABDOMINAL PAIN [None]
